FAERS Safety Report 23858257 (Version 1)
Quarter: 2024Q2

REPORT INFORMATION
  Report Type: Spontaneous
  Country: US (occurrence: US)
  Receive Date: 20240515
  Receipt Date: 20240515
  Transmission Date: 20240716
  Serious: No
  Sender: FDA-Public Use
  Company Number: US-BAYER-2024A069994

PATIENT

DRUGS (1)
  1. MIRALAX [Suspect]
     Active Substance: POLYETHYLENE GLYCOL 3350
     Indication: Surgery
     Dosage: AS DIRECTED ON THE LABEL. DOSE
     Route: 048
     Dates: start: 20240509, end: 20240509

REACTIONS (1)
  - Drug ineffective for unapproved indication [Unknown]
